FAERS Safety Report 14036416 (Version 1)
Quarter: 2017Q4

REPORT INFORMATION
  Report Type: Spontaneous
  Country: US (occurrence: US)
  Receive Date: 20171003
  Receipt Date: 20171003
  Transmission Date: 20180321
  Serious: No
  Sender: FDA-Public Use
  Company Number: US-ROCHE-1983743

PATIENT
  Sex: Female
  Weight: 70.76 kg

DRUGS (19)
  1. AUBAGIO [Concomitant]
     Active Substance: TERIFLUNOMIDE
     Route: 065
     Dates: start: 20170425
  2. SERTRALINE [Concomitant]
     Active Substance: SERTRALINE HYDROCHLORIDE
     Route: 065
  3. OCREVUS [Suspect]
     Active Substance: OCRELIZUMAB
     Indication: MULTIPLE SCLEROSIS
     Dosage: 30MG/ML
     Route: 042
     Dates: start: 20170618
  4. BOTOX [Concomitant]
     Active Substance: ONABOTULINUMTOXINA
     Route: 065
     Dates: start: 20170818
  5. MODAFINIL. [Concomitant]
     Active Substance: MODAFINIL
     Route: 065
     Dates: start: 20161122
  6. SERTRALINE [Concomitant]
     Active Substance: SERTRALINE HYDROCHLORIDE
     Route: 065
  7. BOTOX [Concomitant]
     Active Substance: ONABOTULINUMTOXINA
     Route: 065
     Dates: start: 20170618
  8. CEPHALEXIN. [Concomitant]
     Active Substance: CEPHALEXIN
     Route: 065
     Dates: start: 20161024
  9. TIZANIDINE. [Concomitant]
     Active Substance: TIZANIDINE
     Route: 065
     Dates: start: 20170711
  10. MOMETASONE [Concomitant]
     Active Substance: MOMETASONE
     Route: 061
     Dates: start: 20170628
  11. NITROFURANTOIN MACROCRYSTALS [Concomitant]
     Active Substance: NITROFURANTOIN
     Route: 065
     Dates: start: 20160621
  12. SULFAMETHOXAZOLE/TRIMETHOPRIM [Concomitant]
     Active Substance: SULFAMETHOXAZOLE\TRIMETHOPRIM
     Dosage: 800-160 MG
     Route: 065
     Dates: start: 20170524
  13. VESICARE [Concomitant]
     Active Substance: SOLIFENACIN SUCCINATE
     Route: 065
     Dates: start: 20170808
  14. MODAFINIL. [Concomitant]
     Active Substance: MODAFINIL
     Route: 065
     Dates: start: 20160622
  15. DIAZEPAM. [Concomitant]
     Active Substance: DIAZEPAM
     Route: 065
     Dates: start: 20170723
  16. EZETIMIBE. [Concomitant]
     Active Substance: EZETIMIBE
     Route: 065
     Dates: start: 20170711
  17. OXYBUTYNIN CHLORIDE ER [Concomitant]
     Active Substance: OXYBUTYNIN CHLORIDE
     Route: 065
     Dates: start: 20160802
  18. SERTRALINE [Concomitant]
     Active Substance: SERTRALINE HYDROCHLORIDE
     Route: 048
     Dates: start: 20170711
  19. RITALIN [Concomitant]
     Active Substance: METHYLPHENIDATE HYDROCHLORIDE
     Route: 065

REACTIONS (13)
  - Muscular weakness [Unknown]
  - Depression [Unknown]
  - Ill-defined disorder [Unknown]
  - Lhermitte^s sign [Unknown]
  - Movement disorder [Unknown]
  - Fatigue [Recovering/Resolving]
  - Burning sensation [Recovered/Resolved]
  - Muscle spasticity [Unknown]
  - Anxiety [Unknown]
  - Emotional distress [Unknown]
  - Hypoaesthesia [Not Recovered/Not Resolved]
  - Dysstasia [Unknown]
  - Dysphagia [Recovering/Resolving]
